FAERS Safety Report 7614674-5 (Version None)
Quarter: 2011Q3

REPORT INFORMATION
  Report Type: 
  Country: None (occurrence: None)
  Receive Date: 20110708
  Receipt Date: 20110704
  Transmission Date: 20111222
  Serious: Yes (Hospitalization)
  Sender: FDA-Public Use
  Company Number: FK201101313

PATIENT
  Age: 15 Year
  Sex: Male

DRUGS (1)
  1. ROPIVACAINE HYDROCHLORIDE [Suspect]
     Indication: GENERAL ANAESTHESIA
     Dosage: 10ML/H, INTRAVENOUS
     Route: 042

REACTIONS (2)
  - COMPARTMENT SYNDROME [None]
  - PAIN [None]
